FAERS Safety Report 15151484 (Version 2)
Quarter: 2019Q3

REPORT INFORMATION
  Report Type: Spontaneous
  Country: US (occurrence: US)
  Receive Date: 20180716
  Receipt Date: 20190924
  Transmission Date: 20191004
  Serious: No
  Sender: FDA-Public Use
  Company Number: US-ACTELION-A-NJ2018-175478

PATIENT
  Sex: Female

DRUGS (4)
  1. REMODULIN [Concomitant]
     Active Substance: TREPROSTINIL
  2. COUMADIN [Concomitant]
     Active Substance: WARFARIN SODIUM
  3. OPSUMIT [Suspect]
     Active Substance: MACITENTAN
     Indication: PULMONARY ARTERIAL HYPERTENSION
     Dosage: 10 MG, QD
     Route: 048
     Dates: start: 201611
  4. LOVENOX [Concomitant]
     Active Substance: ENOXAPARIN SODIUM

REACTIONS (2)
  - Infusion site discharge [Unknown]
  - Muscle spasms [Unknown]
